FAERS Safety Report 11138376 (Version 7)
Quarter: 2015Q4

REPORT INFORMATION
  Report Type: Report from Study
  Country: FR (occurrence: FR)
  Receive Date: 20150526
  Receipt Date: 20151215
  Transmission Date: 20160304
  Serious: Yes (Death, Life-Threatening, Hospitalization)
  Sender: FDA-Public Use
  Company Number: PHHY2015FR042723

PATIENT
  Age: 49 Year
  Sex: Female

DRUGS (3)
  1. EXEMESTANE. [Concomitant]
     Active Substance: EXEMESTANE
     Indication: PRODUCT USED FOR UNKNOWN INDICATION
     Route: 065
  2. AFINITOR [Suspect]
     Active Substance: EVEROLIMUS
     Indication: BREAST CANCER
     Dosage: 10 MG, QD
     Route: 048
     Dates: start: 20150208, end: 20150408
  3. AFINITOR [Suspect]
     Active Substance: EVEROLIMUS
     Dosage: 5 MG, QD
     Route: 048
     Dates: start: 20150424, end: 20150427

REACTIONS (13)
  - Hepatic failure [Fatal]
  - Device related infection [Unknown]
  - Vitamin D deficiency [Recovered/Resolved]
  - Malignant neoplasm progression [Fatal]
  - Hypocalcaemia [Recovered/Resolved]
  - Asthenia [Recovering/Resolving]
  - Breast cancer metastatic [Fatal]
  - Sepsis [Recovered/Resolved]
  - Blood culture positive [Unknown]
  - Hypocalcaemia [Recovering/Resolving]
  - Hypokalaemia [Unknown]
  - Pyrexia [Recovered/Resolved]
  - Diarrhoea [Recovered/Resolved]

NARRATIVE: CASE EVENT DATE: 20150302
